FAERS Safety Report 9258928 (Version 2)
Quarter: 2013Q2

REPORT INFORMATION
  Report Type: Spontaneous
  Country: FR (occurrence: FR)
  Receive Date: 20130426
  Receipt Date: 20130614
  Transmission Date: 20140414
  Serious: Yes (Hospitalization, Other)
  Sender: FDA-Public Use
  Company Number: FR-BRISTOL-MYERS SQUIBB COMPANY-18798637

PATIENT
  Age: 68 Year
  Sex: Female
  Weight: 95 kg

DRUGS (11)
  1. BYETTA [Suspect]
     Indication: TYPE 2 DIABETES MELLITUS
     Dosage: DOSE INCREASED:2 TWICE DAILY AND THEN WAS INCREASED TO 10 MG THREE TIMES A DAY,16APR2013
     Dates: start: 2009, end: 20130416
  2. DAONIL [Concomitant]
     Route: 048
  3. RILMENIDINE [Concomitant]
  4. LASILIX [Concomitant]
  5. DISCOTRINE [Concomitant]
  6. URSOLVAN [Concomitant]
  7. ATARAX [Concomitant]
  8. INEXIUM [Concomitant]
  9. EUPRESSYL [Concomitant]
  10. TOCO [Concomitant]
     Dosage: TOCO500
  11. TAHOR [Concomitant]

REACTIONS (3)
  - Lipase increased [Unknown]
  - Cardiac failure [Unknown]
  - Renal failure acute [Unknown]
